FAERS Safety Report 7740024-X (Version None)
Quarter: 2011Q3

REPORT INFORMATION
  Report Type: 
  Country: None (occurrence: None)
  Receive Date: 20110909
  Receipt Date: 20110831
  Transmission Date: 20111222
  Serious: Yes (Other)
  Sender: FDA-Public Use
  Company Number: CA-JNJFOC-20110803069

PATIENT

DRUGS (12)
  1. REMICADE [Suspect]
     Indication: MATERNAL EXPOSURE DURING PREGNANCY
     Route: 064
     Dates: start: 20110521, end: 20110521
  2. REMICADE [Suspect]
     Indication: EXPOSURE DURING BREAST FEEDING
     Route: 064
     Dates: start: 20110521, end: 20110521
  3. REMICADE [Suspect]
     Route: 064
     Dates: start: 20110326, end: 20110326
  4. REMICADE [Suspect]
     Route: 064
     Dates: start: 20110216, end: 20110216
  5. REMICADE [Suspect]
     Route: 064
     Dates: start: 20110301, end: 20110301
  6. REMICADE [Suspect]
     Route: 064
     Dates: start: 20110719
  7. REMICADE [Suspect]
     Route: 064
     Dates: start: 20110719
  8. REMICADE [Suspect]
     Route: 064
     Dates: start: 20110301, end: 20110301
  9. REMICADE [Suspect]
     Route: 064
     Dates: start: 20110326, end: 20110326
  10. REMICADE [Suspect]
     Route: 064
     Dates: start: 20110216, end: 20110216
  11. IMURAN [Concomitant]
     Indication: CROHN'S DISEASE
     Route: 064
     Dates: start: 20080814
  12. PREDNISONE [Concomitant]
     Route: 064

REACTIONS (2)
  - BREAST FEEDING [None]
  - PREMATURE BABY [None]
